FAERS Safety Report 6680232-2 (Version None)
Quarter: 2010Q2

REPORT INFORMATION
  Report Type: 
  Country: None (occurrence: None)
  Receive Date: 20100413
  Receipt Date: 20100406
  Transmission Date: 20101027
  Serious: Yes (Disabling)
  Sender: FDA-Public Use
  Company Number: DE-ABBOTT-10P-062-0636432-00

PATIENT
  Sex: Female

DRUGS (4)
  1. HUMIRA [Suspect]
     Indication: PSORIASIS
     Route: 058
     Dates: start: 20071201
  2. L-THYROX [Concomitant]
     Indication: HYPOTHYROIDISM
  3. ACETYLSALICYLIC ACID [Concomitant]
     Indication: DRUG USE FOR UNKNOWN INDICATION
  4. ANALGESICS [Concomitant]
     Indication: PAIN

REACTIONS (3)
  - DEAFNESS [None]
  - EAR INFECTION [None]
  - TINNITUS [None]
